FAERS Safety Report 5297353-1 (Version None)
Quarter: 2007Q2

REPORT INFORMATION
  Report Type: 
  Country: None (occurrence: None)
  Receive Date: 20070409
  Receipt Date: 20070326
  Transmission Date: 20071010
  Serious: Yes (Death)
  Sender: FDA-Public Use
  Company Number: GXKR2007NO02885

PATIENT
  Age: 82 Year
  Sex: Female

DRUGS (3)
  1. SIMVASTATIN [Suspect]
     Dosage: 10 MG DAILY
  2. WARFARIN SODIUM [Suspect]
     Indication: DEEP VEIN THROMBOSIS
     Dosage: 17.5 MG, WEEKLY
  3. ALBYL-E (ACETYLSALICYLIC ACID, MAGNESIUM OXIDE) [Suspect]

REACTIONS (3)
  - CEREBRAL HAEMORRHAGE [None]
  - DRUG INTERACTION [None]
  - INTERNATIONAL NORMALISED RATIO INCREASED [None]
